FAERS Safety Report 6906706-4 (Version None)
Quarter: 2010Q3

REPORT INFORMATION
  Report Type: 
  Country: None (occurrence: None)
  Receive Date: 20100804
  Receipt Date: 20100727
  Transmission Date: 20110219
  Serious: Yes (Hospitalization)
  Sender: FDA-Public Use
  Company Number: DE-ABBOTT-10P-062-0660454-00

PATIENT
  Age: 49 Year
  Sex: Female

DRUGS (3)
  1. HUMIRA [Suspect]
     Indication: RHEUMATOID ARTHRITIS
     Dates: start: 20080701
  2. ETANERCEPT [Concomitant]
     Indication: RHEUMATOID ARTHRITIS
     Dates: start: 20010901, end: 20071101
  3. MTX [Concomitant]
     Indication: RHEUMATOID ARTHRITIS

REACTIONS (2)
  - SYNOVECTOMY [None]
  - SYNOVIORTHESIS [None]
